FAERS Safety Report 12750435 (Version 1)
Quarter: 2016Q3

REPORT INFORMATION
  Report Type: Spontaneous
  Country: US (occurrence: US)
  Receive Date: 20160915
  Receipt Date: 20160915
  Transmission Date: 20161109
  Serious: No
  Sender: FDA-Public Use
  Company Number: US-ASTELLAS-2016US003073

PATIENT
  Age: 59 Year
  Sex: Male

DRUGS (2)
  1. XTANDI [Suspect]
     Active Substance: ENZALUTAMIDE
     Dosage: UNK UNK, UNKNOWN FREQ.
     Route: 065
  2. XTANDI [Suspect]
     Active Substance: ENZALUTAMIDE
     Indication: PROSTATE CANCER
     Route: 048
     Dates: start: 20160120, end: 20160217

REACTIONS (11)
  - Pollakiuria [Unknown]
  - Hot flush [Not Recovered/Not Resolved]
  - Peripheral swelling [Unknown]
  - Asthenopia [Not Recovered/Not Resolved]
  - Dyspnoea [Unknown]
  - Somnolence [Unknown]
  - Dizziness [Unknown]
  - Treatment noncompliance [Unknown]
  - Weight decreased [Unknown]
  - Constipation [Unknown]
  - Hypertension [Unknown]

NARRATIVE: CASE EVENT DATE: 20160201
